FAERS Safety Report 6531360-3 (Version None)
Quarter: 2010Q1

REPORT INFORMATION
  Report Type: 
  Country: None (occurrence: None)
  Receive Date: 20100108
  Receipt Date: 20091002
  Transmission Date: 20100710
  Serious: No
  Sender: FDA-Public Use
  Company Number: A0810152A

PATIENT
  Age: 60 Year
  Sex: Female

DRUGS (7)
  1. TYKERB [Suspect]
     Indication: BREAST CANCER
     Dosage: 1250MG PER DAY
     Route: 048
     Dates: start: 20090926
  2. NAVELBINE [Suspect]
     Dosage: 60MG PER DAY
     Dates: start: 20090925
  3. MAGIC MOUTHWASH [Concomitant]
  4. LISINOPRIL [Concomitant]
  5. VITAMIN B6 [Concomitant]
  6. CALCIUM [Concomitant]
  7. MULTIVITAMIN WITH IRON [Concomitant]

REACTIONS (7)
  - ABDOMINAL PAIN [None]
  - BACK PAIN [None]
  - CONSTIPATION [None]
  - DIARRHOEA [None]
  - DISCOMFORT [None]
  - FATIGUE [None]
  - VIRAL PHARYNGITIS [None]
